FAERS Safety Report 6930243-4 (Version None)
Quarter: 2010Q3

REPORT INFORMATION
  Report Type: 
  Country: None (occurrence: None)
  Receive Date: 20100817
  Receipt Date: 20100817
  Transmission Date: 20110219
  Serious: Yes (Other)
  Sender: FDA-Public Use
  Company Number: None

PATIENT
  Sex: Male
  Weight: 104.3273 kg

DRUGS (2)
  1. CYCLOBENZAPRINE [Suspect]
     Indication: BACK PAIN
     Dosage: 10 MG. 3X DAILY
     Dates: start: 20100301, end: 20100601
  2. GABAPENTIN [Suspect]
     Indication: BACK PAIN
     Dosage: 300 MG. 3X DAILY
     Dates: start: 20100603, end: 20100701

REACTIONS (4)
  - CYANOPSIA [None]
  - IMPAIRED DRIVING ABILITY [None]
  - VISION BLURRED [None]
  - VISUAL IMPAIRMENT [None]
